FAERS Safety Report 21949938 (Version 1)
Quarter: 2023Q1

REPORT INFORMATION
  Report Type: Spontaneous
  Country: US (occurrence: None)
  Receive Date: 20230202
  Receipt Date: 20230202
  Transmission Date: 20230418
  Serious: Yes (Other)
  Sender: FDA-Public Use
  Company Number: None

PATIENT
  Age: 35 Year
  Sex: Female
  Weight: 73.94 kg

DRUGS (9)
  1. MIRENA [Suspect]
     Active Substance: LEVONORGESTREL
  2. ZOLOFT [Concomitant]
     Active Substance: SERTRALINE HYDROCHLORIDE
  3. WELLBUTRIN [Concomitant]
     Active Substance: BUPROPION HYDROCHLORIDE
  4. ALLEGRA [Concomitant]
     Active Substance: FEXOFENADINE HYDROCHLORIDE
  5. PEPCID [Concomitant]
     Active Substance: FAMOTIDINE
  6. PLAQUENIL [Concomitant]
     Active Substance: HYDROXYCHLOROQUINE SULFATE
  7. ATIVAN [Concomitant]
     Active Substance: LORAZEPAM
  8. VYVANSE [Concomitant]
     Active Substance: LISDEXAMFETAMINE DIMESYLATE
  9. IBUPROFEN [Concomitant]
     Active Substance: IBUPROFEN

REACTIONS (12)
  - Abdominal pain [None]
  - Vaginal haemorrhage [None]
  - Vomiting [None]
  - Ovarian cyst [None]
  - Mood altered [None]
  - Mood swings [None]
  - Feeling of despair [None]
  - Crying [None]
  - Depressed mood [None]
  - Depression [None]
  - Suicidal ideation [None]
  - Fear of disease [None]

NARRATIVE: CASE EVENT DATE: 20221111
